FAERS Safety Report 6771365-0 (Version None)
Quarter: 2010Q2

REPORT INFORMATION
  Report Type: 
  Country: None (occurrence: None)
  Receive Date: 20100520
  Receipt Date: 20090310
  Transmission Date: 20101027
  Serious: Yes (Other)
  Sender: FDA-Public Use
  Company Number: 2009181412

PATIENT
  Age: 65 Year
  Sex: Female

DRUGS (5)
  1. PROVERA [Suspect]
  2. OGEN [Suspect]
  3. PREMARIN [Suspect]
  4. ESTROPIPATE [Suspect]
  5. PREMPRO [Suspect]

REACTIONS (1)
  - BREAST CANCER FEMALE [None]
